FAERS Safety Report 12350357 (Version 1)
Quarter: 2016Q2

REPORT INFORMATION
  Report Type: Spontaneous
  Country: US (occurrence: US)
  Receive Date: 20160510
  Receipt Date: 20160510
  Transmission Date: 20160815
  Serious: No
  Sender: FDA-Public Use
  Company Number: US-PFIZER INC-2016223545

PATIENT
  Age: 74 Year
  Sex: Male
  Weight: 135 kg

DRUGS (2)
  1. ADVIL [Suspect]
     Active Substance: IBUPROFEN
     Dosage: 200 MG, 3X/DAY, 2 IN THE MORNING ONE AT LUNH
     Dates: start: 20160418
  2. ADVIL [Suspect]
     Active Substance: IBUPROFEN
     Indication: ARTHRALGIA
     Dosage: 600 MG, 3X/DAY
     Route: 048
     Dates: start: 201604, end: 20160417

REACTIONS (3)
  - Product use issue [Unknown]
  - Blood urine present [Unknown]
  - Pollakiuria [Unknown]

NARRATIVE: CASE EVENT DATE: 20160417
